FAERS Safety Report 15050401 (Version 4)
Quarter: 2019Q1

REPORT INFORMATION
  Report Type: Spontaneous
  Country: US (occurrence: US)
  Receive Date: 20180622
  Receipt Date: 20190219
  Transmission Date: 20190417
  Serious: No
  Sender: FDA-Public Use
  Company Number: US-PFIZER INC-2018250520

PATIENT
  Age: 64 Year
  Sex: Female
  Weight: 78.5 kg

DRUGS (4)
  1. VISTARIL [Suspect]
     Active Substance: HYDROXYZINE PAMOATE
     Dosage: 25 MG, UNK
  2. XOLAIR [Concomitant]
     Active Substance: OMALIZUMAB
     Indication: URTICARIA
     Dosage: UNK, (SHOT)
  3. VISTARIL [Suspect]
     Active Substance: HYDROXYZINE PAMOATE
     Dosage: 25 MG, 2X/DAY
  4. VISTARIL [Suspect]
     Active Substance: HYDROXYZINE PAMOATE
     Dosage: 50 MG, 2X/DAY

REACTIONS (3)
  - Wrong technique in product usage process [Unknown]
  - Restless legs syndrome [Recovering/Resolving]
  - Blood iron decreased [Unknown]
